FAERS Safety Report 5086477-X (Version None)
Quarter: 2006Q3

REPORT INFORMATION
  Report Type: 
  Country: None (occurrence: None)
  Receive Date: 20060823
  Receipt Date: 20060814
  Transmission Date: 20061208
  Serious: Yes (Hospitalization)
  Sender: FDA-Public Use
  Company Number: DE-JNJFOC-20060606501

PATIENT
  Age: 38 Year
  Sex: Female
  Weight: 127.8 kg

DRUGS (10)
  1. HALDOL [Suspect]
     Route: 048
  2. HALDOL [Suspect]
     Route: 048
  3. HALDOL [Suspect]
     Route: 048
  4. HALDOL [Suspect]
     Route: 048
  5. HALDOL [Suspect]
     Indication: DRUG USE FOR UNKNOWN INDICATION
     Route: 048
  6. MIRTAZAPINE [Suspect]
     Route: 048
  7. MIRTAZAPINE [Suspect]
     Indication: DRUG USE FOR UNKNOWN INDICATION
     Route: 048
  8. ENAHEXAL [Concomitant]
     Route: 048
  9. HCT HEXAL [Concomitant]
     Route: 048
  10. JODID [Concomitant]
     Route: 048

REACTIONS (1)
  - WEIGHT INCREASED [None]
